FAERS Safety Report 16668759 (Version 5)
Quarter: 2019Q3

REPORT INFORMATION
  Report Type: Spontaneous
  Country: DE (occurrence: DE)
  Receive Date: 20190805
  Receipt Date: 20190917
  Transmission Date: 20191004
  Serious: Yes (Other)
  Sender: FDA-Public Use
  Company Number: DE-B.I. PHARMACEUTICALS,INC./RIDGEFIELD-2019-BI-031781

PATIENT
  Age: 76 Year
  Sex: Female
  Weight: 41 kg

DRUGS (6)
  1. SRIVASSO [Suspect]
     Active Substance: TIOTROPIUM BROMIDE ANHYDROUS
     Indication: ASTHMA
     Route: 055
     Dates: start: 20190710
  2. BEROTEC [Concomitant]
     Active Substance: FENOTEROL HYDROBROMIDE
     Indication: CHRONIC OBSTRUCTIVE PULMONARY DISEASE
     Route: 055
     Dates: start: 2018, end: 2019
  3. FOSTER [PIROXICAM] [Concomitant]
     Indication: ASTHMA
  4. SRIVASSO [Suspect]
     Active Substance: TIOTROPIUM BROMIDE ANHYDROUS
     Indication: CHRONIC OBSTRUCTIVE PULMONARY DISEASE
  5. FOSTER [PIROXICAM] [Concomitant]
     Indication: CHRONIC OBSTRUCTIVE PULMONARY DISEASE
     Route: 048
     Dates: start: 2017, end: 2019
  6. BEROTEC [Concomitant]
     Active Substance: FENOTEROL HYDROBROMIDE
     Indication: ASTHMA

REACTIONS (5)
  - Product quality issue [Unknown]
  - Dyspnoea [Recovered/Resolved]
  - Blood pressure increased [Unknown]
  - Apnoea [Recovered/Resolved]
  - Blood glucose increased [Unknown]

NARRATIVE: CASE EVENT DATE: 20190710
